FAERS Safety Report 6275975-9 (Version None)
Quarter: 2009Q3

REPORT INFORMATION
  Report Type: 
  Country: None (occurrence: None)
  Receive Date: 20090720
  Receipt Date: 20090713
  Transmission Date: 20100115
  Serious: Yes (Hospitalization)
  Sender: FDA-Public Use
  Company Number: 2008US003108

PATIENT
  Age: 37 Year
  Sex: Male
  Weight: 90.7 kg

DRUGS (2)
  1. AMEVIVE [Suspect]
     Indication: PSORIASIS
     Dosage: 15 MG, WEEKLY, INTRAMUSCULAR
     Route: 030
     Dates: start: 20050806, end: 20051209
  2. ENBREL [Concomitant]

REACTIONS (1)
  - CELLULITIS [None]
